FAERS Safety Report 5517702-6 (Version None)
Quarter: 2007Q4

REPORT INFORMATION
  Report Type: 
  Country: None (occurrence: None)
  Receive Date: 20071114
  Receipt Date: 20071106
  Transmission Date: 20080405
  Serious: Yes (Hospitalization)
  Sender: FDA-Public Use
  Company Number: US-GENENTECH-250973

PATIENT
  Sex: Female
  Weight: 71.655 kg

DRUGS (4)
  1. BEVACIZUMAB [Suspect]
     Indication: BREAST CANCER
     Dosage: 5 MG/KG, UNK
     Route: 042
     Dates: start: 20071015
  2. TRASTUZUMAB [Suspect]
     Indication: BREAST CANCER
     Dosage: 2 MG/KG, UNK
     Route: 042
     Dates: start: 20071015
  3. CARBOPLATIN [Suspect]
     Indication: BREAST CANCER
     Dosage: 6 AUC, UNK
     Route: 042
     Dates: start: 20071015
  4. PACLITAXEL [Suspect]
     Indication: BREAST CANCER
     Dosage: 100 MG/M2, UNK
     Route: 042
     Dates: start: 20071015

REACTIONS (1)
  - GROIN ABSCESS [None]
